FAERS Safety Report 10514995 (Version 2)
Quarter: 2014Q4

REPORT INFORMATION
  Report Type: Report from Study
  Country: US (occurrence: US)
  Receive Date: 20141013
  Receipt Date: 20141017
  Transmission Date: 20150528
  Serious: Yes (Hospitalization, Other)
  Sender: FDA-Public Use
  Company Number: PHEH2014US020083

PATIENT
  Age: 43 Year
  Sex: Male

DRUGS (2)
  1. NEORAL [Suspect]
     Active Substance: CYCLOSPORINE
     Dosage: 150 MG, BID
     Route: 048
  2. NEORAL [Suspect]
     Active Substance: CYCLOSPORINE
     Indication: RENAL TRANSPLANT
     Dosage: 175 MG, BID
     Route: 048

REACTIONS (3)
  - Intestinal obstruction [Recovering/Resolving]
  - Small intestinal obstruction [Unknown]
  - Dehydration [Unknown]

NARRATIVE: CASE EVENT DATE: 20140923
